FAERS Safety Report 9338499 (Version 1)
Quarter: 2013Q2

REPORT INFORMATION
  Report Type: Spontaneous
  Country: US (occurrence: US)
  Receive Date: 20130610
  Receipt Date: 20130610
  Transmission Date: 20140414
  Serious: Yes (Other)
  Sender: FDA-Public Use
  Company Number: US-JNJFOC-20130521914

PATIENT
  Age: 43 Year
  Sex: Male

DRUGS (22)
  1. DARUNAVIR [Suspect]
     Indication: HIV INFECTION
     Route: 065
  2. DARUNAVIR [Suspect]
     Indication: HIV INFECTION
     Route: 065
  3. TRUVADA [Suspect]
     Indication: HIV INFECTION
     Route: 065
  4. TRUVADA [Suspect]
     Indication: HIV INFECTION
     Route: 065
  5. RITONAVIR [Suspect]
     Indication: HIV INFECTION
     Route: 065
  6. RITONAVIR [Suspect]
     Indication: HIV INFECTION
     Route: 065
  7. RALTEGRAVIR [Suspect]
     Indication: HIV INFECTION
     Route: 065
  8. RALTEGRAVIR [Suspect]
     Indication: HIV INFECTION
     Route: 065
  9. ZIDOVUDINE [Suspect]
     Indication: HIV INFECTION
     Route: 065
  10. ZIDOVUDINE [Suspect]
     Indication: HIV INFECTION
     Route: 065
  11. VELCADE [Suspect]
     Indication: PLASMA CELL MYELOMA
     Route: 065
  12. VELCADE [Suspect]
     Indication: PLASMA CELL MYELOMA
     Dosage: ON DAYS 1, 4, 8, AND 11
     Route: 065
  13. DEXAMETHASONE [Suspect]
     Indication: PLASMA CELL MYELOMA
     Route: 065
  14. DEXAMETHASONE [Suspect]
     Indication: PLASMA CELL MYELOMA
     Dosage: DAYS 1-4
     Route: 065
  15. THALIDOMIDE [Suspect]
     Indication: PLASMA CELL MYELOMA
     Dosage: DAYS 1-4
     Route: 065
  16. THALIDOMIDE [Suspect]
     Indication: PLASMA CELL MYELOMA
     Route: 065
  17. CISPLATIN [Suspect]
     Indication: PLASMA CELL MYELOMA
     Dosage: DAYS 1-4
     Route: 042
  18. ADRIAMYCIN [Suspect]
     Indication: PLASMA CELL MYELOMA
     Dosage: DAYS 1-4
     Route: 042
  19. CYCLOPHOSPHAMIDE [Suspect]
     Indication: PLASMA CELL MYELOMA
     Dosage: DAYS 1-4
     Route: 042
  20. ETOPOSIDE [Suspect]
     Indication: PLASMA CELL MYELOMA
     Dosage: DAYS 1-4
     Route: 042
  21. FILGRASTIM [Suspect]
     Indication: PLASMA CELL MYELOMA
     Route: 065
  22. MELPHALAN [Suspect]
     Indication: PLASMA CELL MYELOMA
     Route: 065

REACTIONS (1)
  - Neuropathy peripheral [Unknown]
